FAERS Safety Report 9285776 (Version 2)
Quarter: 2013Q4

REPORT INFORMATION
  Report Type: Spontaneous
  Country: US (occurrence: US)
  Receive Date: 20130513
  Receipt Date: 20131025
  Transmission Date: 20140711
  Serious: Yes (Other)
  Sender: FDA-Public Use
  Company Number: US-PFIZER INC-2013146827

PATIENT
  Age: 57 Year
  Sex: Female

DRUGS (8)
  1. LYRICA [Suspect]
     Dosage: 75 MG, 2X/DAY
     Dates: start: 200812
  2. CLONAZEPAM [Concomitant]
     Dosage: UNK
  3. DURAGESIC [Concomitant]
     Dosage: UNK
  4. FLEXERIL [Concomitant]
     Dosage: UNK
  5. COREG [Concomitant]
     Dosage: UNK
  6. ZOLOFT [Concomitant]
     Dosage: UNK
  7. TOVIAZ [Concomitant]
     Dosage: UNK
  8. SOLU-MEDROL [Concomitant]
     Dosage: UNK

REACTIONS (2)
  - Tooth loss [Unknown]
  - Tooth discolouration [Unknown]
